FAERS Safety Report 19441833 (Version 1)
Quarter: 2021Q2

REPORT INFORMATION
  Report Type: Report from Study
  Country: IT (occurrence: IT)
  Receive Date: 20210621
  Receipt Date: 20210621
  Transmission Date: 20210717
  Serious: Yes (Other)
  Sender: FDA-Public Use
  Company Number: IT-ACCORD-229050

PATIENT
  Age: 78 Year
  Sex: Female

DRUGS (2)
  1. LOPINAVIR/RITONAVIR [Interacting]
     Active Substance: LOPINAVIR\RITONAVIR
     Indication: COVID-19
     Dosage: 400/100 MG TWICE/DAILY FOR 7?14 DAYS
  2. HYDROXYCHLOROQUINE [Suspect]
     Active Substance: HYDROXYCHLOROQUINE
     Indication: COVID-19
     Dosage: 800 MG FOR THE FIRST DAY, FOLLOWED BY 400 MG/DAILY FOR 5?7 DAYS

REACTIONS (4)
  - Drug interaction [Unknown]
  - Hypokalaemia [Recovering/Resolving]
  - Off label use [Unknown]
  - Electrocardiogram QT prolonged [Recovering/Resolving]
